FAERS Safety Report 9741857 (Version 1)
Quarter: 2013Q4

REPORT INFORMATION
  Report Type: Spontaneous
  Country: US (occurrence: US)
  Receive Date: 20131210
  Receipt Date: 20131210
  Transmission Date: 20140711
  Serious: Yes (Other)
  Sender: FDA-Public Use
  Company Number: US-TEVA-449928USA

PATIENT
  Age: 24 Year
  Sex: Female
  Weight: 62.65 kg

DRUGS (4)
  1. PLAN B ONE-STEP [Suspect]
     Indication: POST COITAL CONTRACEPTION
     Dosage: 1.5 MILLIGRAM DAILY;
     Route: 048
     Dates: start: 20131109, end: 20131109
  2. PLAN B ONE-STEP [Suspect]
     Dosage: 1.5 MILLIGRAM DAILY;
     Route: 048
     Dates: start: 20131110, end: 20131110
  3. PLAN B ONE-STEP [Suspect]
     Dosage: 1.5 MILLIGRAM DAILY;
     Route: 048
     Dates: start: 20131112, end: 20131112
  4. PROZAC [Concomitant]
     Indication: DEPRESSION

REACTIONS (3)
  - Exposure during pregnancy [Unknown]
  - Abdominal pain lower [Not Recovered/Not Resolved]
  - Pregnancy [Unknown]
